FAERS Safety Report 17516913 (Version 4)
Quarter: 2021Q2

REPORT INFORMATION
  Report Type: Spontaneous
  Country: US (occurrence: US)
  Receive Date: 20200309
  Receipt Date: 20210406
  Transmission Date: 20210716
  Serious: Yes (Other)
  Sender: FDA-Public Use
  Company Number: US-ASTELLAS-2020US008181

PATIENT
  Age: 80 Year
  Sex: Male

DRUGS (4)
  1. PADCEV [Suspect]
     Active Substance: ENFORTUMAB VEDOTIN-EJFV
     Indication: TRANSITIONAL CELL CARCINOMA URETHRA
     Dosage: 1.25 MG/KG, UNKNOWN FREQ.(C1D8,C1D15 AND C2D1)
     Route: 065
     Dates: start: 20200114
  2. PADCEV [Suspect]
     Active Substance: ENFORTUMAB VEDOTIN-EJFV
     Dosage: 0.5 MG/KG, UNKNOWN FREQ.
     Route: 065
  3. PADCEV [Suspect]
     Active Substance: ENFORTUMAB VEDOTIN-EJFV
     Dosage: 1.0 MG/KG, UNKNOWN FREQ. (C2D8)
     Route: 065
     Dates: start: 20200218, end: 20200225
  4. PADCEV [Suspect]
     Active Substance: ENFORTUMAB VEDOTIN-EJFV
     Dosage: 0.75 MG/KG, UNKNOWN FREQ. (CYCLE 4)
     Route: 065
     Dates: start: 202003

REACTIONS (10)
  - Blood urea increased [Unknown]
  - Weight decreased [Not Recovered/Not Resolved]
  - Performance status decreased [Unknown]
  - Neuropathy peripheral [Recovering/Resolving]
  - Quality of life decreased [Unknown]
  - Dysgeusia [Unknown]
  - Decreased appetite [Unknown]
  - Blood creatinine increased [Unknown]
  - Fatigue [Unknown]
  - Diarrhoea [Recovered/Resolved]

NARRATIVE: CASE EVENT DATE: 202001
